FAERS Safety Report 10634021 (Version 2)
Quarter: 2014Q4

REPORT INFORMATION
  Report Type: Spontaneous
  Country: CA (occurrence: None)
  Receive Date: 20141203
  Receipt Date: 20141224
  Transmission Date: 20150529
  Serious: Yes (Hospitalization, Other)
  Sender: FDA-Public Use
  Company Number: 2014CA010257

PATIENT
  Age: 56 Year
  Sex: Male

DRUGS (3)
  1. ASPIRIN. [Concomitant]
     Active Substance: ASPIRIN
  2. ELIGARD [Suspect]
     Active Substance: LEUPROLIDE ACETATE
  3. BRILINTA [Concomitant]
     Active Substance: TICAGRELOR

REACTIONS (1)
  - Acute coronary syndrome [None]
